FAERS Safety Report 7402222-4 (Version None)
Quarter: 2011Q1

REPORT INFORMATION
  Report Type: 
  Country: None (occurrence: None)
  Receive Date: 20110330
  Receipt Date: 20110318
  Transmission Date: 20110831
  Serious: Yes (Hospitalization)
  Sender: FDA-Public Use
  Company Number: 2011MA002920

PATIENT
  Age: 49 Year
  Sex: Female

DRUGS (8)
  1. R05072759 (IGGI MAB) (NO PREF. NAME) [Suspect]
     Indication: B-CELL LYMPHOMA
     Dosage: 400 MG; QD; IV
     Route: 042
     Dates: start: 20090707
  2. SEPTRA [Concomitant]
  3. DOMPERIDONE [Concomitant]
  4. FLUDARABINE PHOSPHATE [Suspect]
     Indication: B-CELL LYMPHOMA
     Dosage: 40 MG; QD; IV
     Route: 042
     Dates: start: 20090707
  5. CYCLOPHOSPHAMIDE [Suspect]
     Indication: B-CELL LYMPHOMA
     Dosage: 400 MG; DAILY; IV
     Route: 042
     Dates: start: 20090707
  6. ACYCLOVIR [Concomitant]
  7. COTRIM [Concomitant]
  8. FLUCONAZOLE [Concomitant]

REACTIONS (2)
  - H1N1 INFLUENZA [None]
  - COMMUNITY ACQUIRED INFECTION [None]
